FAERS Safety Report 16847192 (Version 1)
Quarter: 2019Q3

REPORT INFORMATION
  Report Type: Spontaneous
  Country: GB (occurrence: GB)
  Receive Date: 20190924
  Receipt Date: 20190924
  Transmission Date: 20191005
  Serious: Yes (Other)
  Sender: FDA-Public Use
  Company Number: PHHY2019GB219736

PATIENT
  Age: 8 Year
  Sex: Male
  Weight: 33.8 kg

DRUGS (1)
  1. ILARIS [Suspect]
     Active Substance: CANAKINUMAB
     Indication: STILL^S DISEASE
     Dosage: 1 DF, QW (4MG/KG)
     Route: 003
     Dates: start: 20151201

REACTIONS (1)
  - Hepatitis A [Recovered/Resolved]

NARRATIVE: CASE EVENT DATE: 20190426
